FAERS Safety Report 10048269 (Version 1)
Quarter: 2014Q1

REPORT INFORMATION
  Report Type: Spontaneous
  Country: US (occurrence: None)
  Receive Date: 20140327
  Receipt Date: 20140327
  Transmission Date: 20141002
  Serious: Yes (Hospitalization)
  Sender: FDA-Public Use
  Company Number: 2014-US-002992

PATIENT
  Age: 48 Year
  Sex: Female
  Weight: 68 kg

DRUGS (4)
  1. XYREM [Suspect]
     Indication: NARCOLEPSY
     Route: 048
     Dates: start: 201312
  2. ZYRTEC (CETIRIZINE HYDROCHLORIDE) [Concomitant]
  3. SYNTHROID (LEVOTHYROXINE SODIUM) [Concomitant]
  4. PROZAC (FLUOXETINE HYDROCHLORIDE) [Concomitant]

REACTIONS (7)
  - Electrocardiogram abnormal [None]
  - Blood electrolytes abnormal [None]
  - Dysphonia [None]
  - Gastrooesophageal reflux disease [None]
  - Tremor [None]
  - Dyspnoea [None]
  - Anxiety [None]
